FAERS Safety Report 6194937-3 (Version None)
Quarter: 2009Q2

REPORT INFORMATION
  Report Type: 
  Country: None (occurrence: None)
  Receive Date: 20090515
  Receipt Date: 20090515
  Transmission Date: 20091009
  Serious: No
  Sender: FDA-Public Use
  Company Number: None

PATIENT
  Age: 63 Year
  Sex: Female
  Weight: 72.5755 kg

DRUGS (2)
  1. LEVAQUIN [Suspect]
     Indication: URINARY TRACT INFECTION
     Dosage: 1TABLET 1TIME A DAY PO
     Route: 048
     Dates: start: 20080908, end: 20080910
  2. LEVAQUIN [Concomitant]

REACTIONS (2)
  - LIMB INJURY [None]
  - TENDONITIS [None]
